FAERS Safety Report 17512596 (Version 1)
Quarter: 2020Q1

REPORT INFORMATION
  Report Type: Spontaneous
  Country: DE (occurrence: DE)
  Receive Date: 20200306
  Receipt Date: 20200306
  Transmission Date: 20200409
  Serious: Yes (Hospitalization)
  Sender: FDA-Public Use
  Company Number: DE-ALLERGAN-S04-GER-01450-01

PATIENT
  Sex: Male

DRUGS (1)
  1. CIPRAMIL TABLETS [Suspect]
     Active Substance: CITALOPRAM HYDROBROMIDE
     Indication: DEPRESSION
     Dosage: 5-10 CIPRAMIL 20MG TABLETS PRN
     Route: 048
     Dates: start: 20040313, end: 20040313

REACTIONS (6)
  - Euphoric mood [Recovered/Resolved]
  - Mydriasis [Recovered/Resolved]
  - Restlessness [Recovered/Resolved]
  - Overdose [Unknown]
  - Pupil fixed [Recovered/Resolved]
  - Dizziness [Recovered/Resolved]

NARRATIVE: CASE EVENT DATE: 20040313
